FAERS Safety Report 5605410-2 (Version None)
Quarter: 2008Q1

REPORT INFORMATION
  Report Type: 
  Country: None (occurrence: None)
  Receive Date: 20080129
  Receipt Date: 20080115
  Transmission Date: 20080703
  Serious: Yes (Other)
  Sender: FDA-Public Use
  Company Number: US-BAYER-200811256NA

PATIENT
  Age: 40 Year
  Sex: Female
  Weight: 76 kg

DRUGS (5)
  1. MIRENA [Suspect]
     Indication: CONTRACEPTION
     Route: 015
     Dates: start: 20071231, end: 20080112
  2. LEXAPRO [Concomitant]
     Indication: DRUG USE FOR UNKNOWN INDICATION
  3. TOPAMAX [Concomitant]
     Indication: DRUG USE FOR UNKNOWN INDICATION
  4. ATIVAN [Concomitant]
     Indication: DRUG USE FOR UNKNOWN INDICATION
  5. WELLBUTRIN [Concomitant]
     Indication: DRUG USE FOR UNKNOWN INDICATION

REACTIONS (1)
  - UTERINE RUPTURE [None]
